FAERS Safety Report 12632173 (Version 2)
Quarter: 2016Q3

REPORT INFORMATION
  Report Type: Spontaneous
  Country: US (occurrence: US)
  Receive Date: 20160808
  Receipt Date: 20160808
  Transmission Date: 20161109
  Serious: No
  Sender: FDA-Public Use
  Company Number: US-BEH-2016062073

PATIENT
  Sex: Female
  Weight: 99 kg

DRUGS (15)
  1. HIZENTRA [Suspect]
     Active Substance: HUMAN IMMUNOGLOBULIN G
     Indication: IMMUNODEFICIENCY COMMON VARIABLE
     Route: 058
     Dates: start: 20140127
  2. ADDERALL [Concomitant]
     Active Substance: AMPHETAMINE ASPARTATE\AMPHETAMINE SULFATE\DEXTROAMPHETAMINE SACCHARATE\DEXTROAMPHETAMINE SULFATE
  3. LYRICA [Concomitant]
     Active Substance: PREGABALIN
  4. GILDESS [Concomitant]
     Active Substance: ETHINYL ESTRADIOL\NORETHINDRONE ACETATE
  5. FELXERIL [Concomitant]
  6. DIPHENHYDRAMINE. [Concomitant]
     Active Substance: DIPHENHYDRAMINE
  7. LIDOCAINE. [Concomitant]
     Active Substance: LIDOCAINE
  8. EPIPEN [Concomitant]
     Active Substance: EPINEPHRINE
  9. NASAL SPRAY [Concomitant]
     Active Substance: UNSPECIFIED INGREDIENT
  10. ACETAMINOPHEN. [Concomitant]
     Active Substance: ACETAMINOPHEN
  11. CYMBALTA [Concomitant]
     Active Substance: DULOXETINE HYDROCHLORIDE
  12. SYMBICORT [Concomitant]
     Active Substance: BUDESONIDE\FORMOTEROL FUMARATE DIHYDRATE
  13. CELEXA [Concomitant]
     Active Substance: CITALOPRAM HYDROBROMIDE
  14. ALBUTEROL. [Concomitant]
     Active Substance: ALBUTEROL
  15. VICODIN [Concomitant]
     Active Substance: ACETAMINOPHEN\HYDROCODONE BITARTRATE

REACTIONS (1)
  - Oral herpes [Unknown]
